FAERS Safety Report 11713066 (Version 4)
Quarter: 2016Q1

REPORT INFORMATION
  Report Type: Report from Study
  Country: ES (occurrence: ES)
  Receive Date: 20151109
  Receipt Date: 20160308
  Transmission Date: 20160525
  Serious: Yes (Hospitalization, Other)
  Sender: FDA-Public Use
  Company Number: ES-AMGEN-ESPSL2015115950

PATIENT
  Age: 75 Year
  Sex: Female
  Weight: 85 kg

DRUGS (1)
  1. ARANESP [Suspect]
     Active Substance: DARBEPOETIN ALFA
     Indication: RENAL FAILURE
     Dosage: 80 MUG, QWK
     Route: 058
     Dates: start: 20151002

REACTIONS (7)
  - Incorrect dose administered [Unknown]
  - General physical health deterioration [Recovering/Resolving]
  - Haematuria [Recovered/Resolved]
  - Urinary tract infection [Recovering/Resolving]
  - Haemorrhage [Recovering/Resolving]
  - Metabolic disorder [Recovering/Resolving]
  - Oedema peripheral [Recovered/Resolved]

NARRATIVE: CASE EVENT DATE: 201510
